FAERS Safety Report 9454484 (Version 2)
Quarter: 2013Q3

REPORT INFORMATION
  Report Type: Spontaneous
  Country: US (occurrence: None)
  Receive Date: 20130808
  Receipt Date: 20130816
  Transmission Date: 20140515
  Serious: Yes (Hospitalization)
  Sender: FDA-Public Use
  Company Number: ALK-2013-001847

PATIENT
  Age: 52 Year
  Sex: Male

DRUGS (2)
  1. VIVTROL [Suspect]
     Indication: ALCOHOLISM
     Route: 030
     Dates: start: 20130624
  2. ANITHYPERTENSIVES [Concomitant]

REACTIONS (3)
  - Joint injury [None]
  - Fall [None]
  - Feeling abnormal [None]
